FAERS Safety Report 7266479-5 (Version None)
Quarter: 2011Q1

REPORT INFORMATION
  Report Type: 
  Country: None (occurrence: None)
  Receive Date: 20110131
  Receipt Date: 20110126
  Transmission Date: 20110831
  Serious: Yes (Death, Hospitalization)
  Sender: FDA-Public Use
  Company Number: IT-PFIZER INC-2011012975

PATIENT
  Age: 74 Year
  Sex: Male

DRUGS (28)
  1. PIPERACILLIN AND TAZOBACTAM [Suspect]
     Dosage: 3 DF, DAILY
     Route: 042
     Dates: start: 20101226, end: 20101230
  2. AMIKACIN [Suspect]
     Indication: SEPSIS
     Dosage: 0.5 G, 2X/DAY
     Route: 042
     Dates: start: 20101220, end: 20101226
  3. CANCIDAS [Suspect]
     Dosage: 50 MG, 1X/DAY
     Route: 042
     Dates: start: 20101226, end: 20110112
  4. MERREM [Suspect]
     Indication: SEPSIS
     Dosage: 500 MG, 1X/DAY
     Route: 042
     Dates: start: 20110104, end: 20110111
  5. HUMULIN R [Concomitant]
  6. LASIX [Concomitant]
  7. TARGOCID [Suspect]
     Indication: SEPSIS
     Dosage: 200 MG, 2X/DAY
     Route: 042
     Dates: start: 20101225, end: 20110104
  8. PIPERACILLIN AND TAZOBACTAM [Suspect]
     Dosage: 4 DF, DAILY
     Route: 042
     Dates: start: 20101222, end: 20101225
  9. ETACRYNIC ACID [Concomitant]
  10. LONGASTATINA [Concomitant]
  11. DIFLUCAN [Concomitant]
  12. ZYVOX [Suspect]
     Indication: SEPSIS
     Dosage: 600 MG, 1X/DAY
     Route: 042
     Dates: start: 20110104, end: 20110113
  13. CANCIDAS [Suspect]
     Indication: SEPSIS
     Dosage: 70 MG, 1X/DAY
     Route: 042
     Dates: start: 20101225, end: 20101225
  14. ALBUMIN HUMAN [Concomitant]
  15. PRO EFFERALGAN [Concomitant]
  16. GASTROGRAFIN [Concomitant]
  17. ZYVOX [Suspect]
     Dosage: UNK
     Dates: start: 20110122
  18. CIPROFLOXACIN [Suspect]
     Indication: SEPSIS
     Dosage: 200 MG, 2X/DAY
     Route: 042
     Dates: start: 20101227, end: 20110103
  19. MERREM [Suspect]
     Dosage: UNK
     Dates: start: 20110122
  20. CISATRACURIUM BESILATE [Concomitant]
  21. CLEXANE [Concomitant]
  22. ANTRA [Concomitant]
  23. NORADRENALINE [Concomitant]
  24. KONAKION [Concomitant]
  25. CORDARONE [Concomitant]
  26. PIPERACILLIN AND TAZOBACTAM [Suspect]
     Indication: SEPSIS
     Dosage: 2 DF, DAILY
     Route: 042
     Dates: start: 20101215, end: 20101221
  27. MORPHINE HYDROCHLORIDE [Concomitant]
  28. KANRENOL [Concomitant]

REACTIONS (3)
  - STEVENS-JOHNSON SYNDROME [None]
  - ERYTHEMA [None]
  - CARDIAC ARREST [None]
